FAERS Safety Report 5063824-6 (Version None)
Quarter: 2006Q3

REPORT INFORMATION
  Report Type: 
  Country: None (occurrence: None)
  Receive Date: 20060726
  Receipt Date: 20060726
  Transmission Date: 20061208
  Serious: Yes (Other)
  Sender: FDA-Public Use
  Company Number: None

PATIENT
  Age: 53 Year
  Sex: Female
  Weight: 63.5036 kg

DRUGS (1)
  1. TUSSIONEX [Suspect]
     Indication: COUGH
     Dosage: 1 TSP X1 DOSE ORAL [ONE DOSE ONLY]
     Route: 048
     Dates: start: 20060718

REACTIONS (2)
  - ABDOMINAL PAIN UPPER [None]
  - VOMITING [None]
